FAERS Safety Report 14836015 (Version 1)
Quarter: 2018Q2

REPORT INFORMATION
  Report Type: Spontaneous
  Country: US (occurrence: US)
  Receive Date: 20180413
  Receipt Date: 20180413
  Transmission Date: 20180711
  Serious: Yes (Hospitalization)
  Sender: FDA-Public Use
  Company Number: None

PATIENT
  Age: 70 Year
  Sex: Male

DRUGS (2)
  1. FUROSEMIDE 120MG BID HOME MED [Concomitant]
  2. FUROSEMIDE. [Suspect]
     Active Substance: FUROSEMIDE
     Indication: CARDIAC FAILURE
     Route: 042
     Dates: start: 20170921, end: 20170930

REACTIONS (5)
  - Ototoxicity [None]
  - Deafness [None]
  - Blood creatinine increased [None]
  - Deafness neurosensory [None]
  - Cerumen impaction [None]

NARRATIVE: CASE EVENT DATE: 20171005
